FAERS Safety Report 25337069 (Version 4)
Quarter: 2025Q4

REPORT INFORMATION
  Report Type: Spontaneous
  Country: US (occurrence: US)
  Receive Date: 20250520
  Receipt Date: 20251217
  Transmission Date: 20260117
  Serious: Yes (Other)
  Sender: ROCHE
  Company Number: US-ROCHE-10000284884

PATIENT
  Age: 50 Year
  Sex: Female
  Weight: 102.06 kg

DRUGS (23)
  1. XOLAIR PFS [Suspect]
     Active Substance: OMALIZUMAB
     Indication: Idiopathic urticaria
     Dosage: ONGOING, STRENGTH:300MG/2ML
     Route: 058
     Dates: start: 20230830
  2. XOLAIR PFS [Suspect]
     Active Substance: OMALIZUMAB
     Indication: Angioedema
  3. DAPSONE [Concomitant]
     Active Substance: DAPSONE
     Dosage: SIG: 75 MILLIGRAMS 2 TIMES A DAY ORAL FOR 7 DAYS, IF NO IMPROVEME NT OF SYMPTOMS INCREASE 100MG TWICE PER DAY. FOR 30 DAY(S), ?MDD: 200
  4. DAPSONE [Concomitant]
     Active Substance: DAPSONE
     Dosage: SIG: 75 MILLIGRAMS 2 TIMES A DAY ORAL FOR 7 DAYS, IF NO IMPROVEME NT OF SYMPTOMS INCREASE 100MG TWICE PER DAY. FOR 30 DAY(S), ?MDD: 200
  5. EPIPEN [Concomitant]
     Active Substance: EPINEPHRINE
     Dosage: 1 DOSE AS NEEDED INJECTION FOR 1 DAY(S)
  6. FAMOTIDINE [Concomitant]
     Active Substance: FAMOTIDINE
     Dosage: SIG: TAKE 1 TABLET BY MOUTH TWICE A DAY ORAL FOR 30 DAY(S)
  7. Fexofenadine HCI [Concomitant]
     Dosage: SIG: TAKE 2 TABLETS BY MOUTH EVERY DAY FOR 60 DAYS
  8. HYDROXYZINE HYDROCHLORIDE [Concomitant]
     Active Substance: HYDROXYZINE HYDROCHLORIDE
     Dosage: SIG: 1-3 TABLETS 3 TIMES A DAY AS NEEDED FOR ITCHING ORAL FOR 30 DAY(S
  9. KETOTIFEN FUMARATE [Concomitant]
     Active Substance: KETOTIFEN FUMARATE
     Dosage: SIG: 1 MG TWICE A DAY ORAL FOR 30 DAY(S
  10. LIDOCANNA [Concomitant]
     Active Substance: LIDOCAINE
     Dosage: SIG: EXTERNAL
  11. METFORMIN HYDROCHLORIDE [Concomitant]
     Active Substance: METFORMIN HYDROCHLORIDE
     Dosage: 1 TABLET(S) DAILY ORAL FOR 1 DAY(S)
  12. MONTELUKAST SODIUM [Concomitant]
     Active Substance: MONTELUKAST SODIUM
     Dosage: SIG: TAKE 1 TABLET BY MOUTH EVERY DAY FOR 90 DAYS
  13. ONDANSETRON HYDROCHLORIDE [Concomitant]
     Active Substance: ONDANSETRON HYDROCHLORIDE
     Dosage: 1 TABLET(S) DAILY ORAL FOR 10 DAY(S
  14. PANTOPRAZOLE SODIUM [Concomitant]
     Active Substance: PANTOPRAZOLE SODIUM
     Dosage: 1 TABLET(S) DAILY ORAL FOR 30 DAY(S)
  15. SAVELLA [Concomitant]
     Active Substance: MILNACIPRAN HYDROCHLORIDE
     Dosage: 1 TABLET(S) DAILY ORAL
  16. Sertraline HCI [Concomitant]
  17. SUMATRIPTAN SUCCINATE [Concomitant]
     Active Substance: SUMATRIPTAN SUCCINATE
     Dosage: SIG: 1 TABLET AT ONSET OF HEADACHE. ?MAY BE REPEATED ONCE TWO HOURS AFTER THE FIRST DOSE IF HEADACHE IS STILL PRESENT. ?MAXIMUM DOSE 200 MG/24 HOUR FOR 30 DAY(S
  18. TACROLIMUS [Concomitant]
     Active Substance: TACROLIMUS
     Dosage: SIG: 2 CAPSULE TWICE A DAY FOR 30 DAY(S
  19. t?ZANidine HCI 4 [Concomitant]
  20. TOPIRAMATE [Concomitant]
     Active Substance: TOPIRAMATE
     Dosage: 1 TABLET(S) ?DAILY ORAL FOR 1 DAY(S
  21. XYZAL [Concomitant]
     Active Substance: LEVOCETIRIZINE DIHYDROCHLORIDE
     Dosage: 2 TABLET(S) 2 TIMES A DAY ORAL FOR 30 DAY(S)
  22. XYZAL [Concomitant]
     Active Substance: LEVOCETIRIZINE DIHYDROCHLORIDE
     Dosage: 2 TABLET(S) 2 TIMES A DAY ORAL FOR 30 DAY(S)
  23. PREDNISONE [Concomitant]
     Active Substance: PREDNISONE
     Dosage: SIG: 4 TABS PO DAILY FOR 2 DAYS, 3 TABS PO DAILY FOR 2 DAYS, 2 TABS PO DAILY FOR 2 DAYS, 1 TAB PO DAILY FOR 2 DAYS ORAL FOR 8 DAY(S)

REACTIONS (8)
  - Fatigue [Not Recovered/Not Resolved]
  - Migraine [Not Recovered/Not Resolved]
  - Vision blurred [Not Recovered/Not Resolved]
  - Eye swelling [Not Recovered/Not Resolved]
  - Mental impairment [Not Recovered/Not Resolved]
  - Dyspnoea [Unknown]
  - Oxygen saturation decreased [Unknown]
  - Urticaria [Unknown]

NARRATIVE: CASE EVENT DATE: 20230830
